FAERS Safety Report 8603866-4 (Version None)
Quarter: 2012Q3

REPORT INFORMATION
  Report Type: 
  Country: None (occurrence: None)
  Receive Date: 20120818
  Receipt Date: 20120808
  Transmission Date: 20120928
  Serious: Yes (Death, Hospitalization)
  Sender: FDA-Public Use
  Company Number: PH-BAXTER-2012BAX014257

PATIENT
  Sex: Male

DRUGS (2)
  1. DIANEAL PD4 WITH 1.5% DEXTROSE [Suspect]
     Route: 033
     Dates: start: 20120606, end: 20120808
  2. DIANEAL PD4 WITH 4.25% DEXTROSE [Suspect]
     Route: 033
     Dates: start: 20120606, end: 20120808

REACTIONS (2)
  - MULTI-ORGAN FAILURE [None]
  - HYPERTENSIVE NEPHROPATHY [None]
